FAERS Safety Report 9614630 (Version 3)
Quarter: 2014Q1

REPORT INFORMATION
  Report Type: Report from Study
  Country: JP (occurrence: JP)
  Receive Date: 20131011
  Receipt Date: 20140109
  Transmission Date: 20141002
  Serious: Yes (Other)
  Sender: FDA-Public Use
  Company Number: JP-JNJFOC-20131001347

PATIENT
  Age: 77 Year
  Sex: Male
  Weight: 50 kg

DRUGS (21)
  1. FENTANYL [Suspect]
     Indication: CANCER PAIN
     Route: 062
     Dates: start: 20130322, end: 20130516
  2. DEXAMETHASONE [Suspect]
     Indication: INTERSTITIAL LUNG DISEASE
     Route: 048
     Dates: end: 20130412
  3. RISPERIDONE [Concomitant]
     Indication: DELIRIUM
     Route: 048
     Dates: start: 20130405, end: 20130423
  4. CILASTATIN SODIUM/IMIPENEM [Concomitant]
     Indication: INTERSTITIAL LUNG DISEASE
     Route: 065
     Dates: start: 20130321, end: 20130327
  5. AMLODIPINE BESILATE [Concomitant]
     Indication: HYPERTENSION
     Route: 048
     Dates: end: 20130410
  6. VONAFEC [Concomitant]
     Indication: HEADACHE
     Route: 054
  7. SENNARIDE [Concomitant]
     Indication: CONSTIPATION
     Route: 048
  8. SODIUM RABEPRAZOLE [Concomitant]
     Indication: PROPHYLAXIS
     Route: 048
  9. HYDROCHLOROTHIAZIDE [Concomitant]
     Indication: HYPERTENSION
     Route: 048
     Dates: end: 20130410
  10. PERPHENAZINE [Concomitant]
     Indication: DELIRIUM
     Route: 065
     Dates: start: 20130321
  11. TIAPRIDE HYDROCHLORIDE [Concomitant]
     Indication: PROPHYLAXIS
     Route: 048
     Dates: start: 20130412, end: 20130426
  12. TIAPRIDE HYDROCHLORIDE [Concomitant]
     Indication: PROPHYLAXIS
     Route: 048
     Dates: start: 20120422
  13. TIAPRIDE HYDROCHLORIDE [Concomitant]
     Indication: DEMENTIA ALZHEIMER^S TYPE
     Route: 048
     Dates: start: 20120422
  14. TIAPRIDE HYDROCHLORIDE [Concomitant]
     Indication: DEMENTIA ALZHEIMER^S TYPE
     Route: 048
     Dates: start: 20130412, end: 20130426
  15. TIAPRIDE HYDROCHLORIDE [Concomitant]
     Indication: DELIRIUM
     Route: 048
     Dates: start: 20130412, end: 20130426
  16. TIAPRIDE HYDROCHLORIDE [Concomitant]
     Indication: DELIRIUM
     Route: 048
     Dates: start: 20120422
  17. MINZAIN [Concomitant]
     Indication: INSOMNIA
     Route: 048
     Dates: start: 20130502
  18. HALOPERIDOL [Concomitant]
     Indication: DELIRIUM
     Route: 048
     Dates: start: 20130329, end: 20130405
  19. ENALAPRIL MALEATE [Concomitant]
     Indication: HYPERTENSION
     Route: 048
  20. ZOLPIDEM TARTRATE [Concomitant]
     Indication: INSOMNIA
     Route: 048
  21. SERENACE [Concomitant]
     Indication: DELIRIUM
     Route: 065
     Dates: start: 20130321

REACTIONS (2)
  - Delirium [Recovered/Resolved]
  - Hyponatraemia [Recovered/Resolved]
